FAERS Safety Report 7724548-7 (Version None)
Quarter: 2011Q3

REPORT INFORMATION
  Report Type: 
  Country: None (occurrence: None)
  Receive Date: 20110901
  Receipt Date: 20110830
  Transmission Date: 20111222
  Serious: Yes (Death, Hospitalization, Other)
  Sender: FDA-Public Use
  Company Number: US-MERCK-1105USA01167

PATIENT
  Age: 76 Year
  Sex: Female

DRUGS (8)
  1. CHONDROITIN SULFATE SODIUM AND GLUCOSAMINE SULFATE [Concomitant]
     Indication: OSTEOARTHRITIS
     Route: 065
     Dates: end: 20101201
  2. FOSAMAX [Suspect]
     Indication: OSTEOPOROSIS
     Route: 048
     Dates: start: 20000421, end: 20001221
  3. CITALOPRAM [Concomitant]
     Indication: DEPRESSION
     Route: 065
     Dates: end: 20101201
  4. ALENDRONATE SODIUM [Suspect]
     Indication: OSTEOPOROSIS
     Route: 048
     Dates: start: 20080301, end: 20090401
  5. CALCIUM (UNSPECIFIED) [Concomitant]
     Route: 065
  6. FOSAMAX [Suspect]
     Route: 048
     Dates: start: 20060103, end: 20071203
  7. TRAVATAN [Concomitant]
     Indication: INTRAOCULAR PRESSURE TEST
     Route: 065
     Dates: end: 20101201
  8. VITAMINS (UNSPECIFIED) [Concomitant]
     Route: 048

REACTIONS (34)
  - OPEN ANGLE GLAUCOMA [None]
  - NERVE COMPRESSION [None]
  - URGE INCONTINENCE [None]
  - SYNCOPE [None]
  - ESSENTIAL HYPERTENSION [None]
  - FEMUR FRACTURE [None]
  - DEAFNESS NEUROSENSORY [None]
  - HYPERKERATOSIS [None]
  - INJURY [None]
  - PERIPHERAL VASCULAR DISORDER [None]
  - RADIUS FRACTURE [None]
  - CELLULITIS [None]
  - OPEN WOUND [None]
  - SCIATICA [None]
  - OSTEONECROSIS [None]
  - FALL [None]
  - COLONIC POLYP [None]
  - HYPERCHOLESTEROLAEMIA [None]
  - IRRITABLE BOWEL SYNDROME [None]
  - SKIN DISORDER [None]
  - CATARACT NUCLEAR [None]
  - OESOPHAGEAL STENOSIS [None]
  - MEDICAL DEVICE COMPLICATION [None]
  - HEPATIC FUNCTION ABNORMAL [None]
  - CARPAL TUNNEL SYNDROME [None]
  - SKIN CANCER [None]
  - RIB FRACTURE [None]
  - IRON DEFICIENCY ANAEMIA [None]
  - VENOUS INSUFFICIENCY [None]
  - HEAD INJURY [None]
  - CONTUSION [None]
  - CIRCULATORY COLLAPSE [None]
  - SHOCK HAEMORRHAGIC [None]
  - PLEURAL EFFUSION [None]
